FAERS Safety Report 4599438-1 (Version None)
Quarter: 2005Q1

REPORT INFORMATION
  Report Type: 
  Country: None (occurrence: None)
  Receive Date: 20050307
  Receipt Date: 20050228
  Transmission Date: 20050727
  Serious: Yes (Hospitalization)
  Sender: FDA-Public Use
  Company Number: 200510539EU

PATIENT
  Age: 47 Year
  Sex: Female

DRUGS (2)
  1. ARAVA [Suspect]
     Route: 048
     Dates: start: 20040923, end: 20050218
  2. ANTIBIOTICS [Concomitant]

REACTIONS (3)
  - CARDIAC DISORDER [None]
  - PARAESTHESIA [None]
  - POLYMENORRHOEA [None]
